FAERS Safety Report 24874850 (Version 2)
Quarter: 2025Q1

REPORT INFORMATION
  Report Type: Spontaneous
  Country: JP (occurrence: JP)
  Receive Date: 20250122
  Receipt Date: 20250130
  Transmission Date: 20250408
  Serious: No
  Sender: BIOMARIN
  Company Number: JP-BIOMARINAP-JP-2025-163189

PATIENT

DRUGS (1)
  1. BRINEURA [Suspect]
     Active Substance: CERLIPONASE ALFA
     Indication: Neuronal ceroid lipofuscinosis
     Route: 065

REACTIONS (2)
  - Gastric haemorrhage [Recovered/Resolved]
  - Stress [Unknown]
